FAERS Safety Report 6433445-9 (Version None)
Quarter: 2009Q4

REPORT INFORMATION
  Report Type: 
  Country: None (occurrence: None)
  Receive Date: 20091106
  Receipt Date: 20091106
  Transmission Date: 20100525
  Serious: Yes (Other)
  Sender: FDA-Public Use
  Company Number: None

PATIENT
  Sex: Female
  Weight: 71.6683 kg

DRUGS (9)
  1. LEVAQUIN [Suspect]
     Indication: PNEUMONIA
     Dosage: 500 MG ONCE DAILY PO
     Route: 048
     Dates: start: 20090925, end: 20091004
  2. ATENOLOL [Concomitant]
  3. HYDROCHLOROTHIAZIDE [Concomitant]
  4. PAROXETINE HCL [Concomitant]
  5. ESTRADIOL [Concomitant]
  6. LEVOTHYROXINE SODIUM [Concomitant]
  7. C0Q10 [Concomitant]
  8. VIT. D [Concomitant]
  9. CALCIUM [Concomitant]

REACTIONS (2)
  - ACTIVITIES OF DAILY LIVING IMPAIRED [None]
  - ARTHRITIS [None]
